FAERS Safety Report 4279816-0 (Version None)
Quarter: 2004Q1

REPORT INFORMATION
  Report Type: 
  Country: None (occurrence: None)
  Receive Date: 20040123
  Receipt Date: 20040115
  Transmission Date: 20041129
  Serious: Yes (Disabling, Other)
  Sender: FDA-Public Use
  Company Number: 200410018BFR

PATIENT
  Sex: Male

DRUGS (2)
  1. STALTOR (CERIVASTATIN) [Suspect]
     Dosage: 0.3 MG TOTAL DAILY ORAL
     Route: 048
     Dates: start: 20000901, end: 20010401
  2. LIPANTHYL [Concomitant]

REACTIONS (8)
  - ARTHRALGIA [None]
  - BACK PAIN [None]
  - HEPATOCELLULAR DAMAGE [None]
  - LIGAMENT DISORDER [None]
  - MUSCLE CRAMP [None]
  - MYALGIA [None]
  - PAIN [None]
  - RENAL PAIN [None]
